FAERS Safety Report 14367410 (Version 1)
Quarter: 2018Q1

REPORT INFORMATION
  Report Type: Spontaneous
  Country: US (occurrence: US)
  Receive Date: 20180109
  Receipt Date: 20180109
  Transmission Date: 20180509
  Serious: No
  Sender: FDA-Public Use
  Company Number: US-TARO-2017TAR01057

PATIENT
  Sex: Female
  Weight: 52.61 kg

DRUGS (7)
  1. LEVOBUNOLOL [Concomitant]
     Active Substance: LEVOBUNOLOL
     Dosage: 2 GTT, 1X/DAY (1 DROP DAILY IN BOTH EYES)
     Dates: start: 2012
  2. LATANOPROST. [Concomitant]
     Active Substance: LATANOPROST
     Dosage: 2 GTT, 1X/DAY (1 DROP DAILY AT BEDTIME IN BOTH EYES)
     Dates: start: 20160304
  3. ATIVAN [Concomitant]
     Active Substance: LORAZEPAM
  4. METRONIDAZOLE GEL USP, 1% [Suspect]
     Active Substance: METRONIDAZOLE
     Indication: RASH
     Dosage: UNK
     Dates: start: 2017, end: 2017
  5. VITAMINS [Concomitant]
     Active Substance: VITAMINS
  6. AREDS [Concomitant]
     Active Substance: MINERALS\VITAMINS
  7. METRONIDAZOLE GEL USP, 1% [Suspect]
     Active Substance: METRONIDAZOLE
     Indication: ROSACEA

REACTIONS (1)
  - Drug ineffective [Recovered/Resolved]

NARRATIVE: CASE EVENT DATE: 2017
